FAERS Safety Report 19813641 (Version 1)
Quarter: 2021Q3

REPORT INFORMATION
  Report Type: Spontaneous
  Country: US (occurrence: US)
  Receive Date: 20210908
  Receipt Date: 20210908
  Transmission Date: 20211014
  Serious: Yes (Hospitalization)
  Sender: FDA-Public Use
  Company Number: None

PATIENT
  Sex: Male
  Weight: 133.5 kg

DRUGS (14)
  1. CYTARABINE. [Suspect]
     Active Substance: CYTARABINE
  2. ACYCLOVIR. [Concomitant]
     Active Substance: ACYCLOVIR
  3. FLUCONAZOLE. [Concomitant]
     Active Substance: FLUCONAZOLE
  4. LEVOFLOXACIN. [Concomitant]
     Active Substance: LEVOFLOXACIN
  5. PANTOPRAZOLE [Concomitant]
     Active Substance: PANTOPRAZOLE
  6. DEXAMETHASONE. [Concomitant]
     Active Substance: DEXAMETHASONE
  7. CEPHALEXIN. [Concomitant]
     Active Substance: CEPHALEXIN
  8. URSODIOL. [Concomitant]
     Active Substance: URSODIOL
  9. METHOTREXATE. [Concomitant]
     Active Substance: METHOTREXATE
  10. PROCHLORPERAZINE. [Concomitant]
     Active Substance: PROCHLORPERAZINE
  11. TRAMADOL. [Concomitant]
     Active Substance: TRAMADOL
  12. DAUNORUBICIN [Suspect]
     Active Substance: DAUNORUBICIN
  13. ONCASPAR [Concomitant]
     Active Substance: PEGASPARGASE
  14. VINCRISTINE SULFATE. [Concomitant]
     Active Substance: VINCRISTINE SULFATE

REACTIONS (3)
  - Pyrexia [None]
  - Face oedema [None]
  - Neutropenic sepsis [None]

NARRATIVE: CASE EVENT DATE: 20210901
